FAERS Safety Report 10457695 (Version 1)
Quarter: 2014Q3

REPORT INFORMATION
  Report Type: Spontaneous
  Country: BR (occurrence: BR)
  Receive Date: 20140916
  Receipt Date: 20140916
  Transmission Date: 20150326
  Serious: Yes (Other)
  Sender: FDA-Public Use
  Company Number: PHHY2014BR119802

PATIENT
  Age: 20 Year
  Sex: Female

DRUGS (3)
  1. DIPIRONE [Suspect]
     Active Substance: METAMIZOLE SODIUM
     Indication: HEADACHE
     Dosage: 1 DF(500MG), Q4H
     Route: 048
     Dates: start: 20140911, end: 20140911
  2. PARACETAMOL [Suspect]
     Active Substance: ACETAMINOPHEN
     Indication: HEADACHE
     Dosage: 1 TABLET (750MG), Q4H
     Dates: start: 20140911, end: 20140911
  3. SANDOMIGRAN [Suspect]
     Active Substance: PIZOTYLINE
     Indication: MIGRAINE
     Dosage: 1 DF(0.5MG), DAILY
     Route: 048
     Dates: end: 201401

REACTIONS (2)
  - Headache [Not Recovered/Not Resolved]
  - Syncope [Not Recovered/Not Resolved]

NARRATIVE: CASE EVENT DATE: 20140911
